FAERS Safety Report 5158332-8 (Version None)
Quarter: 2006Q4

REPORT INFORMATION
  Report Type: 
  Country: None (occurrence: None)
  Receive Date: 20061121
  Receipt Date: 20061121
  Transmission Date: 20070319
  Serious: Yes (Hospitalization)
  Sender: FDA-Public Use
  Company Number: None

PATIENT
  Sex: Male
  Weight: 62.1428 kg

DRUGS (8)
  1. GEMCITABINE [Suspect]
     Indication: PANCREATIC CARCINOMA
     Dosage: 1000MG/M2 DAY 1 + 15 IV DRIP
     Route: 041
     Dates: start: 20060413, end: 20061108
  2. CISPLATIN [Suspect]
     Indication: PANCREATIC CARCINOMA
     Dosage: 20MG/M2 DAY 1 + 15 IV DRIP
     Route: 041
     Dates: start: 20060413, end: 20061108
  3. BEVACIZUMAB 25MG/ML GENENTECH [Suspect]
     Indication: PANCREATIC CARCINOMA
     Dosage: 10MG/KG DAY 1 + 15 IV DRIP
     Route: 041
     Dates: start: 20060413, end: 20061108
  4. MS CONTIN [Concomitant]
  5. DILAUDID [Concomitant]
  6. METOPROLOL SUCCINATE [Concomitant]
  7. COUMADIN [Concomitant]
  8. MIRALAX [Concomitant]

REACTIONS (5)
  - ASCITES [None]
  - DEEP VEIN THROMBOSIS [None]
  - DEHYDRATION [None]
  - MALIGNANT NEOPLASM PROGRESSION [None]
  - PANCREATIC CARCINOMA METASTATIC [None]
